APPROVED DRUG PRODUCT: IC-GREEN
Active Ingredient: INDOCYANINE GREEN
Strength: 40MG/VIAL **Federal Register determination that product was not discontinued or withdrawn for safety or effectiveness reasons**
Dosage Form/Route: INJECTABLE;INJECTION
Application: N011525 | Product #004
Applicant: RENEW PHARMACEUTICALS LTD
Approved: Approved Prior to Jan 1, 1982 | RLD: No | RS: No | Type: DISCN